FAERS Safety Report 8573079-3 (Version None)
Quarter: 2012Q3

REPORT INFORMATION
  Report Type: 
  Country: None (occurrence: None)
  Receive Date: 20120806
  Receipt Date: 20120724
  Transmission Date: 20120928
  Serious: Yes (Death, Life-Threatening, Hospitalization, Other)
  Sender: FDA-Public Use
  Company Number: US-ACTELION-A-NJ2012-68965

PATIENT
  Age: 68 Year
  Sex: Female

DRUGS (4)
  1. LASIX [Concomitant]
  2. EPOPROSTENOL SODIUM [Suspect]
     Indication: PULMONARY ARTERIAL HYPERTENSION
     Dosage: 32 NG/KG, PER MIN
     Route: 041
     Dates: start: 20110617
  3. SILDENAFIL [Concomitant]
  4. ARANESP [Concomitant]

REACTIONS (11)
  - RENAL IMPAIRMENT [None]
  - RIGHT VENTRICULAR FAILURE [None]
  - FALL [None]
  - METABOLIC ACIDOSIS [None]
  - CONCOMITANT DISEASE AGGRAVATED [None]
  - GASTROINTESTINAL HAEMORRHAGE [None]
  - RESPIRATORY ACIDOSIS [None]
  - BLOOD PRESSURE INCREASED [None]
  - ANAEMIA [None]
  - PLATELET COUNT DECREASED [None]
  - LETHARGY [None]
